FAERS Safety Report 10077776 (Version 2)
Quarter: 2014Q2

REPORT INFORMATION
  Report Type: Spontaneous
  Country: DE (occurrence: DE)
  Receive Date: 20140414
  Receipt Date: 20140414
  Transmission Date: 20141212
  Serious: Yes (Other)
  Sender: FDA-Public Use
  Company Number: CHNY2014DE000867

PATIENT
  Sex: Male

DRUGS (2)
  1. SCOPODERM TTS [Suspect]
     Indication: SALIVARY HYPERSECRETION
     Dosage: 1 DF, EVERY 1 TO 2 DAYS
     Route: 062
     Dates: start: 2013
  2. SCOPODERM TTS [Suspect]
     Indication: OFF LABEL USE
     Dosage: 21 DF, Q72H
     Route: 062

REACTIONS (5)
  - Dermatitis allergic [Recovered/Resolved]
  - Erythema [Recovered/Resolved]
  - Wrong technique in drug usage process [Unknown]
  - Inappropriate schedule of drug administration [Unknown]
  - Drug administered at inappropriate site [Unknown]
